FAERS Safety Report 7156607-4 (Version None)
Quarter: 2010Q4

REPORT INFORMATION
  Report Type: 
  Country: None (occurrence: None)
  Receive Date: 20101214
  Receipt Date: 20091210
  Transmission Date: 20110411
  Serious: No
  Sender: FDA-Public Use
  Company Number: US-ASTRAZENECA-2009SE22791

PATIENT
  Age: 56 Year
  Sex: Female

DRUGS (4)
  1. CRESTOR [Suspect]
     Indication: BLOOD CHOLESTEROL INCREASED
     Route: 048
     Dates: start: 20091001, end: 20091208
  2. CRESTOR [Suspect]
     Route: 048
  3. AROMASIN [Concomitant]
     Indication: BREAST CANCER
  4. FOSAMAX [Concomitant]
     Indication: BONE DENSITY DECREASED

REACTIONS (3)
  - CELLULITIS [None]
  - HEADACHE [None]
  - PAIN [None]
